FAERS Safety Report 24629636 (Version 2)
Quarter: 2024Q4

REPORT INFORMATION
  Report Type: Spontaneous
  Country: US (occurrence: US)
  Receive Date: 20241118
  Receipt Date: 20241128
  Transmission Date: 20250114
  Serious: Yes (Hospitalization, Disabling)
  Sender: AMGEN
  Company Number: US-AMGEN-USASP2024223352

PATIENT
  Sex: Male

DRUGS (1)
  1. REPATHA [Suspect]
     Active Substance: EVOLOCUMAB
     Indication: Blood cholesterol abnormal
     Dosage: 420 MILLIGRAM, QMO
     Route: 065

REACTIONS (5)
  - Disability [Unknown]
  - Unevaluable event [Unknown]
  - Device difficult to use [Unknown]
  - Drug dose omission by device [Unknown]
  - Product administration error [Unknown]
